FAERS Safety Report 6011473-5 (Version None)
Quarter: 2008Q4

REPORT INFORMATION
  Report Type: 
  Country: None (occurrence: None)
  Receive Date: 20081218
  Receipt Date: 20060901
  Transmission Date: 20090506
  Serious: Yes (Death, Hospitalization)
  Sender: FDA-Public Use
  Company Number: GB-ROCHE-461894

PATIENT
  Sex: Male
  Weight: 90 kg

DRUGS (2)
  1. XELODA [Suspect]
     Indication: CHEMOTHERAPY
     Route: 048
     Dates: start: 20060712, end: 20060723
  2. OXALIPLATIN [Suspect]
     Indication: CHEMOTHERAPY
     Route: 042
     Dates: start: 20060712

REACTIONS (2)
  - CARDIO-RESPIRATORY ARREST [None]
  - DIARRHOEA [None]
